FAERS Safety Report 12620165 (Version 1)
Quarter: 2016Q3

REPORT INFORMATION
  Report Type: Spontaneous
  Country: US (occurrence: US)
  Receive Date: 20160803
  Receipt Date: 20160803
  Transmission Date: 20161109
  Serious: Yes (Disabling)
  Sender: FDA-Public Use
  Company Number: US-BAYER-2016-149000

PATIENT
  Age: 29 Year
  Sex: Female
  Weight: 83.9 kg

DRUGS (1)
  1. COPPERTONE CLEARLY SHEER FOR BEACH AND POOL SPF 50 PLUS [Suspect]
     Active Substance: AVOBENZONE\HOMOSALATE\OCTISALATE\OCTOCRYLENE\OXYBENZONE
     Indication: PROPHYLAXIS AGAINST SOLAR RADIATION
     Dosage: 1 DOSE, PRN
     Route: 061
     Dates: start: 20160720, end: 20160722

REACTIONS (4)
  - Pain [Recovering/Resolving]
  - Erythema [Recovering/Resolving]
  - Mobility decreased [None]
  - Burns second degree [Recovering/Resolving]

NARRATIVE: CASE EVENT DATE: 20160720
